FAERS Safety Report 22965649 (Version 2)
Quarter: 2023Q4

REPORT INFORMATION
  Report Type: Other
  Country: CA (occurrence: CA)
  Receive Date: 20230921
  Receipt Date: 20231006
  Transmission Date: 20240110
  Serious: Yes (Hospitalization, Other)
  Sender: FDA-Public Use
  Company Number: CA-ROCHE-3424712

PATIENT
  Age: 10 Year
  Sex: Male

DRUGS (16)
  1. XOLAIR [Suspect]
     Active Substance: OMALIZUMAB
     Indication: Asthma
     Dosage: 225 MG, BIW
     Route: 058
     Dates: start: 20171107
  2. XOLAIR [Suspect]
     Active Substance: OMALIZUMAB
     Dosage: 300 MG, BIW
     Route: 058
     Dates: start: 20180213
  3. XOLAIR [Suspect]
     Active Substance: OMALIZUMAB
     Dosage: 300 MG, BIW
     Route: 058
     Dates: start: 20180301
  4. XOLAIR [Suspect]
     Active Substance: OMALIZUMAB
     Dosage: 300 MG, BIW
     Route: 058
     Dates: start: 20190717
  5. XOLAIR [Suspect]
     Active Substance: OMALIZUMAB
     Dosage: 300 MG, BIW
     Route: 058
     Dates: start: 20190717
  6. XOLAIR [Suspect]
     Active Substance: OMALIZUMAB
     Dosage: POWDER AND SOLVENT FOR SOLUTION FOR INJECTION
     Route: 058
     Dates: start: 20200115
  7. XOLAIR [Suspect]
     Active Substance: OMALIZUMAB
     Dosage: 225 MG, BIW
     Route: 058
     Dates: start: 20200125
  8. XOLAIR [Suspect]
     Active Substance: OMALIZUMAB
     Dosage: 225 MG, BIW
     Route: 058
     Dates: start: 20200131
  9. XOLAIR [Suspect]
     Active Substance: OMALIZUMAB
     Dosage: 225 MG, BIW
     Route: 058
     Dates: start: 20200207
  10. XOLAIR [Suspect]
     Active Substance: OMALIZUMAB
     Dosage: 225 MG, BIW
     Route: 058
  11. VENTOLIN [Concomitant]
     Active Substance: ALBUTEROL SULFATE
     Indication: Asthma
     Dosage: 5 DOSAGE FORM, PRN
  12. SINGULAIR [Concomitant]
     Active Substance: MONTELUKAST SODIUM
     Indication: Asthma
     Dosage: UNK UNK, QD
  13. QVAR [Concomitant]
     Active Substance: BECLOMETHASONE DIPROPIONATE
     Indication: Asthma
     Dosage: UNK
  14. SYMBICORT [Concomitant]
     Active Substance: BUDESONIDE\FORMOTEROL FUMARATE DIHYDRATE
     Indication: Asthma
     Dosage: UNK
     Dates: end: 2017
  15. ADVAIR HFA [Concomitant]
     Active Substance: FLUTICASONE PROPIONATE\SALMETEROL XINAFOATE
     Indication: Product used for unknown indication
     Dosage: 2 DOSAGE FORM, BID
  16. CORTISONE [Concomitant]
     Active Substance: CORTISONE
     Indication: Nasal congestion
     Dosage: UNK UNK, QD

REACTIONS (23)
  - Anaphylactic reaction [Recovered/Resolved]
  - Weight increased [Unknown]
  - Exposure to tobacco [Unknown]
  - Frustration tolerance decreased [Unknown]
  - Anxiety [Unknown]
  - Throat clearing [Unknown]
  - Occupational exposure to dust [Unknown]
  - Fear [Unknown]
  - Perfume sensitivity [Unknown]
  - Sensitivity to weather change [Unknown]
  - Obstructive airways disorder [Unknown]
  - Total lung capacity increased [Unknown]
  - Respiratory tract inflammation [Unknown]
  - Terminal insomnia [Unknown]
  - Middle insomnia [Unknown]
  - Cough [Unknown]
  - Asthma [Not Recovered/Not Resolved]
  - Wheezing [Unknown]
  - Dyspnoea [Unknown]
  - Discomfort [Unknown]
  - Chest discomfort [Unknown]
  - Incorrect dose administered [Unknown]
  - Inappropriate schedule of product administration [Unknown]

NARRATIVE: CASE EVENT DATE: 20180213
